FAERS Safety Report 11201162 (Version 1)
Quarter: 2015Q2

REPORT INFORMATION
  Report Type: Spontaneous
  Country: IT (occurrence: IT)
  Receive Date: 20150619
  Receipt Date: 20150619
  Transmission Date: 20150821
  Serious: Yes (Life-Threatening)
  Sender: FDA-Public Use
  Company Number: IT-HOSPIRA-2698235

PATIENT
  Age: 70 Year
  Sex: Male

DRUGS (3)
  1. FLUOROURACIL. [Concomitant]
     Active Substance: FLUOROURACIL
     Indication: ADENOCARCINOMA OF COLON
     Dosage: 600 MG/KG PER SQUARE METER OF BODY SURFACE
     Route: 042
     Dates: start: 20120308, end: 20120705
  2. OXALIPLATIN. [Suspect]
     Active Substance: OXALIPLATIN
     Indication: ADENOCARCINOMA OF COLON
     Route: 042
     Dates: start: 20120308, end: 20120705
  3. FOLINIC ACID [Concomitant]
     Active Substance: LEUCOVORIN
     Indication: ADENOCARCINOMA OF COLON
     Route: 042
     Dates: start: 20120308, end: 20120705

REACTIONS (5)
  - Miosis [Unknown]
  - Loss of consciousness [Unknown]
  - Dyspnoea [Unknown]
  - Trismus [Unknown]
  - Hypotension [Unknown]

NARRATIVE: CASE EVENT DATE: 20120705
